FAERS Safety Report 4521335-8 (Version None)
Quarter: 2004Q4

REPORT INFORMATION
  Report Type: 
  Country: None (occurrence: None)
  Receive Date: 20041208
  Receipt Date: 20030919
  Transmission Date: 20050328
  Serious: Yes (Hospitalization)
  Sender: FDA-Public Use
  Company Number: JP-ABBOTT-03P-087-0234687-00

PATIENT
  Sex: Male

DRUGS (9)
  1. WARFARIN [Suspect]
     Indication: AGE INDETERMINATE MYOCARDIAL INFARCTION
     Dates: start: 20030801
  2. PIOGLITAZONE HCL [Suspect]
     Indication: DIABETES MELLITUS
     Route: 048
     Dates: start: 20030201, end: 20030827
  3. ACETYLSALICYLIC ACID [Suspect]
     Indication: AGE INDETERMINATE MYOCARDIAL INFARCTION
     Route: 048
     Dates: start: 20030801
  4. GLIMEPIRIDE [Suspect]
     Indication: DIABETES MELLITUS
     Route: 048
     Dates: start: 20020101
  5. GLIMEPIRIDE [Suspect]
     Route: 048
     Dates: start: 20020101, end: 20020101
  6. GLIMEPIRIDE [Suspect]
     Route: 048
     Dates: start: 20010101, end: 20020101
  7. ENALAPRIL MALEATE [Suspect]
     Indication: AGE INDETERMINATE MYOCARDIAL INFARCTION
     Route: 048
     Dates: start: 20030801
  8. METOPROLOL TARTRATE [Suspect]
     Indication: AGE INDETERMINATE MYOCARDIAL INFARCTION
     Route: 048
     Dates: start: 20030801
  9. NICORANDIL [Suspect]
     Indication: AGE INDETERMINATE MYOCARDIAL INFARCTION
     Route: 048
     Dates: start: 20030801

REACTIONS (4)
  - ACUTE PULMONARY OEDEMA [None]
  - CARDIAC FAILURE [None]
  - MYOCARDIAL INFARCTION [None]
  - PLEURAL EFFUSION [None]
